FAERS Safety Report 7786863-0 (Version None)
Quarter: 2011Q3

REPORT INFORMATION
  Report Type: 
  Country: None (occurrence: None)
  Receive Date: 20110929
  Receipt Date: 20110922
  Transmission Date: 20111222
  Serious: Yes (Hospitalization, Other)
  Sender: FDA-Public Use
  Company Number: US-MERCK-1103USA03943

PATIENT
  Age: 56 Year
  Sex: Female
  Weight: 92 kg

DRUGS (21)
  1. OMEPRAZOLE [Concomitant]
     Route: 065
     Dates: start: 20060101, end: 20090101
  2. FLONASE [Concomitant]
     Indication: ALLERGIC RESPIRATORY SYMPTOM
     Route: 065
     Dates: start: 20051213
  3. FOSAMAX PLUS D [Suspect]
     Indication: OSTEOPENIA
     Route: 048
     Dates: start: 20070101, end: 20080401
  4. CORTICOSTEROIDS (UNSPECIFIED) [Concomitant]
     Route: 065
     Dates: start: 20050101, end: 20080101
  5. FLUTICASONE [Concomitant]
     Route: 065
  6. FOSAMAX [Suspect]
     Indication: OSTEOPENIA
     Route: 048
     Dates: start: 20000401, end: 20070201
  7. FOSAMAX [Suspect]
     Route: 048
     Dates: start: 20080101, end: 20100503
  8. FOSAMAX [Suspect]
     Indication: OSTEOPOROSIS
     Route: 048
     Dates: start: 20000401, end: 20070201
  9. FOSAMAX [Suspect]
     Route: 048
     Dates: start: 20080101, end: 20100503
  10. VITAMIN D (UNSPECIFIED) [Concomitant]
     Route: 065
     Dates: start: 19910101
  11. CALCIUM (UNSPECIFIED) [Concomitant]
     Route: 065
     Dates: start: 19910101
  12. IRON (UNSPECIFIED) [Concomitant]
     Route: 065
     Dates: start: 19910101
  13. ASPIRIN [Concomitant]
     Route: 048
  14. QVAR 40 [Concomitant]
     Indication: ALLERGIC RESPIRATORY SYMPTOM
     Route: 065
     Dates: start: 20050916
  15. IPRATROPIUM BROMIDE [Concomitant]
     Indication: ALLERGIC RESPIRATORY SYMPTOM
     Route: 065
     Dates: start: 20060707
  16. FOSAMAX PLUS D [Suspect]
     Indication: OSTEOPOROSIS
     Route: 048
     Dates: start: 20070101, end: 20080401
  17. VITAMINS (UNSPECIFIED) [Concomitant]
     Route: 065
     Dates: start: 19910101
  18. PROTONIX [Concomitant]
     Route: 065
     Dates: start: 19940101
  19. [THERAPY UNSPECIFIED] [Concomitant]
     Route: 065
  20. CLONAZEPAM [Concomitant]
     Route: 065
     Dates: start: 20050801
  21. CITALOPRAM [Concomitant]
     Route: 048

REACTIONS (32)
  - ABDOMINAL PAIN [None]
  - COUGH [None]
  - HYPERTENSION [None]
  - PAIN IN EXTREMITY [None]
  - RESTLESS LEGS SYNDROME [None]
  - PULMONARY CONGESTION [None]
  - PAIN [None]
  - FEMUR FRACTURE [None]
  - ANXIETY [None]
  - RHINITIS ALLERGIC [None]
  - COLONIC POLYP [None]
  - CARDIAC DISORDER [None]
  - NECK PAIN [None]
  - HYPERTRIGLYCERIDAEMIA [None]
  - VENOUS INSUFFICIENCY [None]
  - FATIGUE [None]
  - FORMICATION [None]
  - FALL [None]
  - BLOOD CHOLESTEROL INCREASED [None]
  - BACK PAIN [None]
  - MUSCLE SPASMS [None]
  - LIPOEDEMA [None]
  - HAEMORRHOIDS [None]
  - DIVERTICULITIS [None]
  - DRUG INEFFECTIVE [None]
  - ADENOMA BENIGN [None]
  - VOMITING [None]
  - MYOCARDIAL INFARCTION [None]
  - CATARACT [None]
  - URTICARIA [None]
  - IMPAIRED HEALING [None]
  - LYMPHOEDEMA [None]
